FAERS Safety Report 15268218 (Version 1)
Quarter: 2018Q4

REPORT INFORMATION
  Report Type: Spontaneous
  Country: NL (occurrence: NL)
  Receive Date: 20180812
  Receipt Date: 20180812
  Transmission Date: 20190204
  Serious: Yes (Death)
  Sender: FDA-Public Use
  Company Number: NL-TEVA-2018-NL-938683

PATIENT
  Sex: Female

DRUGS (2)
  1. DORMICUM (UNSPEC) (MIDAZOLAM HYDROCHLORIDE) [Suspect]
     Active Substance: MIDAZOLAM HYDROCHLORIDE
     Indication: PALLIATIVE CARE
     Route: 065
  2. MORPHINE [Suspect]
     Active Substance: MORPHINE
     Indication: PALLIATIVE CARE
     Route: 065

REACTIONS (3)
  - Death [Fatal]
  - Off label use [Fatal]
  - Intentional product use issue [Fatal]

NARRATIVE: CASE EVENT DATE: 20180209
